FAERS Safety Report 16192257 (Version 1)
Quarter: 2019Q2

REPORT INFORMATION
  Report Type: Spontaneous
  Country: EG (occurrence: EG)
  Receive Date: 20190412
  Receipt Date: 20190412
  Transmission Date: 20190711
  Serious: Yes (Life-Threatening)
  Sender: FDA-Public Use
  Company Number: EG-ELI_LILLY_AND_COMPANY-EG201904006013

PATIENT
  Age: 69 Year
  Sex: Male

DRUGS (2)
  1. GEMZAR [Suspect]
     Active Substance: GEMCITABINE HYDROCHLORIDE
     Indication: BLADDER CANCER
     Dosage: 1600 MG, CYCLICAL
     Route: 042
     Dates: start: 20190209, end: 20190209
  2. CYTOPLATIN [Concomitant]
     Indication: BLADDER CANCER
     Dosage: 100 MG, CYCLICAL
     Route: 042
     Dates: start: 20190209, end: 20190209

REACTIONS (2)
  - Hypotension [Recovered/Resolved]
  - Hyperhidrosis [Recovered/Resolved]

NARRATIVE: CASE EVENT DATE: 20190209
